FAERS Safety Report 21622988 (Version 7)
Quarter: 2023Q1

REPORT INFORMATION
  Report Type: Spontaneous
  Country: CA (occurrence: GB)
  Receive Date: 20221121
  Receipt Date: 20230330
  Transmission Date: 20230418
  Serious: Yes (Other)
  Sender: FDA-Public Use
  Company Number: GB-SHIRE-CA201925146

PATIENT
  Age: 53 Year
  Sex: Male

DRUGS (129)
  1. ADALIMUMAB [Suspect]
     Active Substance: ADALIMUMAB
     Indication: Crohn^s disease
     Route: 058
     Dates: start: 201707
  2. ADALIMUMAB [Suspect]
     Active Substance: ADALIMUMAB
     Indication: Deep vein thrombosis
  3. BUDESONIDE [Suspect]
     Active Substance: BUDESONIDE
     Indication: Colitis ulcerative
     Dosage: 1 DOSAGE FORM, QD
     Route: 048
     Dates: start: 201707
  4. BUDESONIDE [Suspect]
     Active Substance: BUDESONIDE
     Indication: Colitis ulcerative
     Dosage: 8 DOSAGE FORM, Q8WK
     Route: 048
     Dates: start: 200707
  5. BUDESONIDE [Suspect]
     Active Substance: BUDESONIDE
     Indication: Colitis ulcerative
     Dosage: UNK (1 EVERY 8 WEEKS)
     Route: 048
  6. BUDESONIDE [Suspect]
     Active Substance: BUDESONIDE
     Indication: Colitis ulcerative
     Dosage: UNK (TABLET EVERY 8WEEKS)
     Route: 065
  7. BUDESONIDE [Suspect]
     Active Substance: BUDESONIDE
     Indication: Colitis ulcerative
     Dosage: 8 DOSAGE FORM, QD (TABLET EVERY 8 WEEKS)
     Route: 048
  8. ENTYVIO [Suspect]
     Active Substance: VEDOLIZUMAB
     Indication: Deep vein thrombosis
     Dosage: UNK
     Route: 042
     Dates: start: 2017, end: 2017
  9. ENTYVIO [Suspect]
     Active Substance: VEDOLIZUMAB
     Indication: Deep vein thrombosis
     Dosage: UNK(DOSE FORM:200)
     Route: 042
     Dates: start: 2017, end: 2017
  10. ENTYVIO [Suspect]
     Active Substance: VEDOLIZUMAB
     Indication: Deep vein thrombosis
     Dosage: 200 UNK
     Route: 048
     Dates: start: 2017, end: 2017
  11. ENTYVIO [Suspect]
     Active Substance: VEDOLIZUMAB
     Indication: Deep vein thrombosis
     Route: 042
  12. ENTYVIO [Suspect]
     Active Substance: VEDOLIZUMAB
     Indication: Deep vein thrombosis
     Dosage: UNK (DOSE FORM:200)
     Route: 042
     Dates: start: 2017, end: 2017
  13. ENTYVIO [Suspect]
     Active Substance: VEDOLIZUMAB
     Indication: Deep vein thrombosis
     Dosage: 200 UNK
     Route: 048
     Dates: start: 2017, end: 2017
  14. ENTYVIO [Suspect]
     Active Substance: VEDOLIZUMAB
     Indication: Deep vein thrombosis
     Dosage: UNK, QD
     Route: 048
     Dates: start: 2017, end: 2017
  15. ENTYVIO [Suspect]
     Active Substance: VEDOLIZUMAB
     Indication: Deep vein thrombosis
     Dosage: 8 DOSAGE FORM, Q8WK (1 EVERY 8 WEEKS))
     Route: 065
  16. ENTYVIO [Suspect]
     Active Substance: VEDOLIZUMAB
     Indication: Deep vein thrombosis
     Dosage: 50 MG (FORMULATION: POWDER FOR SOLUTION INTRAVENOUS))
     Route: 065
  17. ENTYVIO [Suspect]
     Active Substance: VEDOLIZUMAB
     Indication: Deep vein thrombosis
     Dosage: UNK
     Route: 065
  18. ENTYVIO [Suspect]
     Active Substance: VEDOLIZUMAB
     Indication: Deep vein thrombosis
     Dosage: 8 DOSAGE FORM, QD
     Route: 065
     Dates: start: 201807
  19. ENTYVIO [Suspect]
     Active Substance: VEDOLIZUMAB
     Indication: Deep vein thrombosis
     Dosage: UNK(DOSE FORM:200)
     Route: 042
     Dates: start: 2017, end: 2017
  20. ALBENDAZOLE [Suspect]
     Active Substance: ALBENDAZOLE
     Indication: Deep vein thrombosis
     Dosage: UNK
     Route: 048
     Dates: start: 201707
  21. SULFASALAZINE [Concomitant]
     Active Substance: SULFASALAZINE
     Indication: Colitis ulcerative
     Dosage: UNK
     Route: 065
     Dates: start: 201709, end: 201709
  22. SULFASALAZINE [Concomitant]
     Active Substance: SULFASALAZINE
     Indication: Colitis ulcerative
     Dosage: UNK
     Route: 065
  23. SULFASALAZINE [Concomitant]
     Active Substance: SULFASALAZINE
     Indication: Colitis ulcerative
     Dosage: UNK
     Route: 065
  24. SULFASALAZINE [Concomitant]
     Active Substance: SULFASALAZINE
     Indication: Colitis ulcerative
     Dosage: UNK
     Route: 065
     Dates: start: 20091001, end: 20161001
  25. SULFASALAZINE [Concomitant]
     Active Substance: SULFASALAZINE
     Indication: Colitis ulcerative
     Dosage: UNK
     Route: 065
     Dates: start: 20090101, end: 20160101
  26. SULFASALAZINE [Concomitant]
     Active Substance: SULFASALAZINE
     Indication: Colitis ulcerative
     Dosage: UNK
     Route: 065
     Dates: end: 201709
  27. SULFASALAZINE [Concomitant]
     Active Substance: SULFASALAZINE
     Indication: Colitis ulcerative
     Dosage: UNK
     Route: 065
  28. SULFASALAZINE [Concomitant]
     Active Substance: SULFASALAZINE
     Indication: Colitis ulcerative
     Dosage: 3 MG, QD
     Route: 065
  29. SULFASALAZINE [Concomitant]
     Active Substance: SULFASALAZINE
     Indication: Colitis ulcerative
     Dosage: UNK
     Route: 065
  30. SULFASALAZINE [Concomitant]
     Active Substance: SULFASALAZINE
     Indication: Colitis ulcerative
     Dosage: 5 MG, QD
     Route: 065
  31. SULFASALAZINE [Concomitant]
     Active Substance: SULFASALAZINE
     Indication: Colitis ulcerative
     Dosage: UNK
     Route: 065
     Dates: start: 201709, end: 201709
  32. SULFASALAZINE [Concomitant]
     Active Substance: SULFASALAZINE
     Indication: Colitis ulcerative
     Dosage: UNK
     Route: 065
     Dates: start: 2009, end: 2016
  33. SULFASALAZINE [Concomitant]
     Active Substance: SULFASALAZINE
     Indication: Colitis ulcerative
     Dosage: UNK
     Route: 065
     Dates: start: 20160101, end: 20160101
  34. SULFASALAZINE [Concomitant]
     Active Substance: SULFASALAZINE
     Indication: Colitis ulcerative
     Route: 065
     Dates: start: 20090101, end: 20160101
  35. SULFASALAZINE [Concomitant]
     Active Substance: SULFASALAZINE
     Indication: Colitis ulcerative
     Dosage: UNK
     Route: 065
     Dates: start: 2009, end: 2016
  36. SULFASALAZINE [Concomitant]
     Active Substance: SULFASALAZINE
     Indication: Colitis ulcerative
     Dosage: UNK
     Route: 065
     Dates: start: 201709, end: 201709
  37. INFLIXIMAB [Suspect]
     Active Substance: INFLIXIMAB
     Indication: Crohn^s disease
     Dosage: 5 MILLIGRAM/KILOGRAM, Q8WK
     Route: 042
     Dates: start: 20171019
  38. INFLIXIMAB [Suspect]
     Active Substance: INFLIXIMAB
     Indication: Crohn^s disease
     Dosage: UNK, Q2W
     Route: 042
  39. INFLIXIMAB [Suspect]
     Active Substance: INFLIXIMAB
     Indication: Crohn^s disease
     Dosage: UNK
     Route: 042
     Dates: start: 201709
  40. INFLIXIMAB [Suspect]
     Active Substance: INFLIXIMAB
     Indication: Crohn^s disease
     Dosage: UNK, Q8WK (1 EVERY 8 WEEKS)
     Route: 042
  41. INFLIXIMAB [Suspect]
     Active Substance: INFLIXIMAB
     Indication: Crohn^s disease
     Dosage: UNK
     Route: 042
  42. INFLIXIMAB [Suspect]
     Active Substance: INFLIXIMAB
     Indication: Crohn^s disease
     Dosage: UNK
     Route: 065
  43. INFLIXIMAB [Suspect]
     Active Substance: INFLIXIMAB
     Indication: Crohn^s disease
     Dosage: UNK
     Route: 042
  44. INFLIXIMAB [Suspect]
     Active Substance: INFLIXIMAB
     Indication: Crohn^s disease
     Dosage: 7 MG/KG, Q8WK
     Route: 042
  45. INFLIXIMAB [Suspect]
     Active Substance: INFLIXIMAB
     Indication: Crohn^s disease
     Dosage: UNK (0, 2, 6 WEEKS, THEN EVERY 8 WEEKS
     Route: 042
     Dates: start: 201709
  46. INFLIXIMAB [Suspect]
     Active Substance: INFLIXIMAB
     Indication: Crohn^s disease
     Dosage: UNK (1 EVERY 6 WEEKS)
     Route: 042
  47. INFLIXIMAB [Suspect]
     Active Substance: INFLIXIMAB
     Indication: Crohn^s disease
     Dosage: UNK, Q6WK
     Route: 042
     Dates: start: 20171019
  48. INFLIXIMAB [Suspect]
     Active Substance: INFLIXIMAB
     Indication: Crohn^s disease
     Dosage: UNK, Q6WK
     Route: 042
     Dates: start: 201709
  49. INFLIXIMAB [Suspect]
     Active Substance: INFLIXIMAB
     Indication: Crohn^s disease
     Dosage: 5 MILLIGRAM/KILOGRAM, Q8WK
     Route: 042
     Dates: start: 20170101, end: 20170901
  50. INFLIXIMAB [Suspect]
     Active Substance: INFLIXIMAB
     Indication: Crohn^s disease
     Dosage: 5 MG (1 EVERY 8 WEEKS)
     Route: 065
  51. INFLIXIMAB [Suspect]
     Active Substance: INFLIXIMAB
     Indication: Crohn^s disease
     Dosage: UNK, Q8WK
     Route: 042
     Dates: start: 20170101
  52. INFLIXIMAB [Suspect]
     Active Substance: INFLIXIMAB
     Indication: Crohn^s disease
     Dosage: 8 DOSAGE FORM
     Route: 048
     Dates: start: 201707
  53. INFLIXIMAB [Suspect]
     Active Substance: INFLIXIMAB
     Indication: Crohn^s disease
     Dosage: UNK, Q8WK
     Route: 042
     Dates: start: 20170101, end: 20170901
  54. INFLIXIMAB [Suspect]
     Active Substance: INFLIXIMAB
     Indication: Crohn^s disease
     Dosage: UNK, Q8WK
     Route: 042
     Dates: start: 20170101, end: 20170901
  55. INFLIXIMAB [Suspect]
     Active Substance: INFLIXIMAB
     Indication: Crohn^s disease
     Dosage: UNK
     Route: 042
     Dates: start: 201709
  56. CORTIFOAM [Suspect]
     Active Substance: HYDROCORTISONE ACETATE
     Indication: Colitis ulcerative
     Dosage: 1 DOSAGE FORM, QD
     Route: 048
     Dates: start: 201707
  57. CORTIFOAM [Suspect]
     Active Substance: HYDROCORTISONE ACETATE
     Indication: Colitis ulcerative
     Dosage: 8 DOSAGE FORM, Q8WK
     Route: 048
  58. CORTIFOAM [Suspect]
     Active Substance: HYDROCORTISONE ACETATE
     Indication: Colitis ulcerative
     Dosage: UNK, QD (FORMULATION: AEROSOL, FORM)
     Route: 048
  59. XELJANZ [Concomitant]
     Active Substance: TOFACITINIB CITRATE
     Indication: Colitis ulcerative
     Dosage: 5 MILLIGRAM, BID
     Route: 048
  60. ASACOL [Suspect]
     Active Substance: MESALAMINE
     Indication: Colitis ulcerative
     Dosage: 4.8 GRAM, QD
     Route: 065
     Dates: start: 20161001
  61. ASACOL [Suspect]
     Active Substance: MESALAMINE
     Indication: Colitis ulcerative
     Dosage: 3 DOSAGE FORM, Q12 H
     Route: 065
     Dates: start: 20161001
  62. ASACOL [Suspect]
     Active Substance: MESALAMINE
     Indication: Colitis ulcerative
     Dosage: 2.4 GRAM, QD
     Route: 065
     Dates: start: 20161001
  63. ASACOL [Suspect]
     Active Substance: MESALAMINE
     Indication: Colitis ulcerative
     Dosage: 6 DOSAGE FORM, QD
     Route: 065
  64. ASACOL [Suspect]
     Active Substance: MESALAMINE
     Indication: Colitis ulcerative
     Dosage: 12 DOSAGE FORM, QD
     Route: 065
  65. ASACOL [Suspect]
     Active Substance: MESALAMINE
     Indication: Colitis ulcerative
     Dosage: 8 DOSAGE FORM, QD
     Route: 065
     Dates: start: 201707
  66. ASACOL [Suspect]
     Active Substance: MESALAMINE
     Indication: Colitis ulcerative
     Dosage: 3 G, QD
     Route: 065
  67. ASACOL [Suspect]
     Active Substance: MESALAMINE
     Indication: Colitis ulcerative
     Dosage: 50 MG
     Route: 065
  68. METHOTREXATE [Concomitant]
     Active Substance: METHOTREXATE
     Indication: Colitis ulcerative
     Dosage: UNK
     Route: 065
     Dates: start: 201709, end: 201709
  69. METHOTREXATE [Concomitant]
     Active Substance: METHOTREXATE
     Indication: Colitis ulcerative
     Dosage: UNK
     Route: 065
     Dates: start: 20090101, end: 20160101
  70. TOFACITINIB [Concomitant]
     Active Substance: TOFACITINIB
     Indication: Product used for unknown indication
     Dosage: UNK
     Route: 065
  71. WARFARIN [Suspect]
     Active Substance: WARFARIN
     Indication: Deep vein thrombosis
     Dosage: UNK (TAPERED DOSE)
     Route: 065
     Dates: start: 2019
  72. WARFARIN [Suspect]
     Active Substance: WARFARIN
     Indication: Deep vein thrombosis
     Dosage: 8 DOSAGE FORM, Q8WK
     Route: 048
     Dates: start: 201707
  73. WARFARIN [Suspect]
     Active Substance: WARFARIN
     Indication: Deep vein thrombosis
     Dosage: UNK
     Route: 048
     Dates: start: 2009, end: 2009
  74. WARFARIN [Suspect]
     Active Substance: WARFARIN
     Indication: Deep vein thrombosis
     Dosage: UNK TAPERED DOSE IN 2009 (EXACT DOSE UNKNOWN);;
     Route: 065
     Dates: end: 2009
  75. WARFARIN [Suspect]
     Active Substance: WARFARIN
     Indication: Deep vein thrombosis
     Dosage: 1 DOSAGE FORM, QD
     Route: 065
     Dates: start: 201707
  76. WARFARIN [Suspect]
     Active Substance: WARFARIN
     Indication: Deep vein thrombosis
     Dosage: UNK
     Route: 065
     Dates: start: 2009
  77. HYDROCORTISONE ACETATE [Suspect]
     Active Substance: HYDROCORTISONE ACETATE
     Indication: Crohn^s disease
     Dosage: 8 DOSAGE FORM,Q8WK
     Route: 048
     Dates: start: 201807
  78. HYDROCORTISONE ACETATE [Suspect]
     Active Substance: HYDROCORTISONE ACETATE
     Indication: Crohn^s disease
     Dosage: 8 DOSAGE FORM Q8W
     Route: 048
     Dates: start: 201707
  79. HYDROCORTISONE ACETATE [Suspect]
     Active Substance: HYDROCORTISONE ACETATE
     Indication: Crohn^s disease
     Dosage: 1 DOSAGE FORM, QD
     Route: 048
     Dates: start: 201807
  80. HYDROCORTISONE ACETATE [Suspect]
     Active Substance: HYDROCORTISONE ACETATE
     Indication: Crohn^s disease
     Dosage: 8 DOSAGE FORM, QD
     Route: 048
     Dates: start: 201807
  81. HYDROCORTISONE ACETATE [Suspect]
     Active Substance: HYDROCORTISONE ACETATE
     Indication: Crohn^s disease
     Dosage: UNK Q8WK (1 EVERY 8 WEEKS)
     Route: 048
  82. HYDROCORTISONE ACETATE [Suspect]
     Active Substance: HYDROCORTISONE ACETATE
     Indication: Crohn^s disease
     Dosage: UNK
     Route: 065
  83. HYDROCORTISONE ACETATE [Suspect]
     Active Substance: HYDROCORTISONE ACETATE
     Indication: Crohn^s disease
     Dosage: UNK UNK, QD
     Route: 048
  84. HYDROCORTISONE ACETATE [Suspect]
     Active Substance: HYDROCORTISONE ACETATE
     Indication: Crohn^s disease
     Dosage: UNK (1 EVERY 6 WEEKS)
     Route: 065
  85. HYDROCORTISONE ACETATE [Suspect]
     Active Substance: HYDROCORTISONE ACETATE
     Indication: Crohn^s disease
     Dosage: UNK
     Route: 042
  86. HYDROCORTISONE ACETATE [Suspect]
     Active Substance: HYDROCORTISONE ACETATE
     Indication: Crohn^s disease
     Dosage: 8 DOSAGE FORM, QD
     Route: 048
     Dates: start: 2017
  87. PREDNISONE [Suspect]
     Active Substance: PREDNISONE
     Indication: Colitis ulcerative
     Dosage: UNK, (TAPERED DOSE)
     Route: 065
     Dates: start: 2009
  88. PREDNISONE [Suspect]
     Active Substance: PREDNISONE
     Indication: Colitis ulcerative
     Dosage: UNK
     Route: 065
  89. PREDNISONE [Suspect]
     Active Substance: PREDNISONE
     Indication: Colitis ulcerative
     Dosage: 40 MG, QD
     Route: 065
  90. PREDNISONE [Suspect]
     Active Substance: PREDNISONE
     Indication: Colitis ulcerative
     Dosage: 50 MILLIGRAM
     Route: 065
     Dates: start: 2009, end: 2009
  91. PREDNISONE [Suspect]
     Active Substance: PREDNISONE
     Indication: Colitis ulcerative
     Dosage: UNK
     Route: 065
     Dates: start: 2017, end: 2017
  92. PREDNISONE [Suspect]
     Active Substance: PREDNISONE
     Indication: Colitis ulcerative
     Dosage: UNK
     Route: 065
     Dates: start: 2017
  93. MESALAMINE [Suspect]
     Active Substance: MESALAMINE
     Indication: Colitis ulcerative
     Dosage: UNK, QD
     Route: 065
  94. MESALAMINE [Suspect]
     Active Substance: MESALAMINE
     Indication: Colitis ulcerative
     Dosage: 8 DOSAGE FORM
     Route: 048
  95. MESALAMINE [Suspect]
     Active Substance: MESALAMINE
     Indication: Colitis ulcerative
     Dosage: UNK (THERAPY DURATION: 1 DAYS)
     Route: 065
  96. MESALAMINE [Suspect]
     Active Substance: MESALAMINE
     Indication: Colitis ulcerative
     Dosage: UNK
     Route: 065
     Dates: start: 201601, end: 201610
  97. MESALAMINE [Suspect]
     Active Substance: MESALAMINE
     Indication: Colitis ulcerative
     Dosage: UNK, Q8W (1 EVERY 8 WEEKS)
     Route: 048
  98. MESALAMINE [Suspect]
     Active Substance: MESALAMINE
     Indication: Colitis ulcerative
     Dosage: 50 MG (THERAPY DURATION: 487)
     Route: 065
  99. MESALAMINE [Suspect]
     Active Substance: MESALAMINE
     Indication: Colitis ulcerative
     Dosage: 50 MG
     Route: 048
  100. MESALAMINE [Suspect]
     Active Substance: MESALAMINE
     Indication: Colitis ulcerative
     Dosage: UNK (THERAPY DURATION: 275.0 DAYS)
     Route: 048
  101. MESALAMINE [Suspect]
     Active Substance: MESALAMINE
     Indication: Colitis ulcerative
     Dosage: 50 MG
     Route: 065
  102. MESALAMINE [Suspect]
     Active Substance: MESALAMINE
     Indication: Colitis ulcerative
     Dosage: 3 G, QD
     Route: 065
  103. MESALAMINE [Suspect]
     Active Substance: MESALAMINE
     Indication: Colitis ulcerative
     Dosage: UNK (THERAPY DURATION: 274.0 DAYS)
     Route: 065
  104. MESALAMINE [Suspect]
     Active Substance: MESALAMINE
     Indication: Colitis ulcerative
     Dosage: 2.4 G, QD
     Route: 065
  105. MESALAMINE [Suspect]
     Active Substance: MESALAMINE
     Indication: Colitis ulcerative
     Dosage: 4.8 MG, QD
     Route: 065
  106. MESALAMINE [Suspect]
     Active Substance: MESALAMINE
     Indication: Colitis ulcerative
     Dosage: 6 DOSAGE FORM, QD
     Route: 048
  107. MESALAMINE [Suspect]
     Active Substance: MESALAMINE
     Indication: Colitis ulcerative
     Dosage: 50 MG (THERAPY DURATION: 275.0 DAYS)
     Route: 048
  108. MESALAMINE [Suspect]
     Active Substance: MESALAMINE
     Indication: Colitis ulcerative
     Dosage: UNK
     Route: 048
  109. MESALAMINE [Suspect]
     Active Substance: MESALAMINE
     Indication: Colitis ulcerative
     Dosage: UNK (THERAPY DURATION: 243.0)
     Route: 065
  110. MESALAMINE [Suspect]
     Active Substance: MESALAMINE
     Indication: Colitis ulcerative
     Dosage: UNK
     Route: 065
  111. MESALAMINE [Suspect]
     Active Substance: MESALAMINE
     Indication: Colitis ulcerative
     Dosage: UNK (THERAPY DURATION: 244.0 DAYS)
     Route: 065
  112. MESALAMINE [Suspect]
     Active Substance: MESALAMINE
     Indication: Colitis ulcerative
     Dosage: UNK
     Route: 048
     Dates: start: 20160101, end: 20161001
  113. MESALAMINE [Suspect]
     Active Substance: MESALAMINE
     Indication: Colitis ulcerative
     Dosage: UNK
     Route: 048
     Dates: start: 20160101, end: 201610
  114. MESALAMINE [Suspect]
     Active Substance: MESALAMINE
     Indication: Colitis ulcerative
     Dosage: UNK
     Route: 065
     Dates: start: 20160101, end: 20161001
  115. MESALAMINE [Suspect]
     Active Substance: MESALAMINE
     Indication: Colitis ulcerative
     Dosage: UNK
     Route: 065
     Dates: start: 20170101, end: 20170901
  116. MESALAMINE [Suspect]
     Active Substance: MESALAMINE
     Indication: Colitis ulcerative
     Dosage: 8 DOSAGE FORM, Q8W
     Route: 048
     Dates: start: 201707
  117. BUDESONIDE [Suspect]
     Active Substance: BUDESONIDE
     Indication: Colitis ulcerative
     Dosage: 1 DOSAGE FORM, QD
     Route: 048
     Dates: start: 20170701
  118. BUDESONIDE [Suspect]
     Active Substance: BUDESONIDE
     Indication: Colitis ulcerative
     Dosage: UNK,  Q8WK (1 EVERY 8 WEEKS)
     Route: 048
  119. BUDESONIDE [Suspect]
     Active Substance: BUDESONIDE
     Indication: Colitis ulcerative
     Dosage: 8 DOSAGE FORM, QD
     Route: 048
  120. BUDESONIDE [Suspect]
     Active Substance: BUDESONIDE
     Indication: Colitis ulcerative
     Dosage: 1 DOSAGE FORM, QD
     Route: 048
  121. BUDESONIDE [Suspect]
     Active Substance: BUDESONIDE
     Indication: Colitis ulcerative
     Dosage: UNK
     Route: 048
  122. HYDROCORTISONE [Suspect]
     Active Substance: HYDROCORTISONE
     Indication: Colitis ulcerative
     Dosage: 1 DOSAGE FORM, QD
     Route: 048
     Dates: start: 201807
  123. HYDROCORTISONE [Suspect]
     Active Substance: HYDROCORTISONE
     Indication: Colitis ulcerative
     Dosage: 3 DOSAGE FORM, BID
     Route: 048
  124. HYDROCORTISONE [Suspect]
     Active Substance: HYDROCORTISONE
     Indication: Colitis ulcerative
     Dosage: UNK, QD
     Route: 048
  125. HYDROCORTISONE [Suspect]
     Active Substance: HYDROCORTISONE
     Indication: Colitis ulcerative
     Dosage: UNK (1 EVERY 6 WEEKS)
     Route: 065
  126. HYDROCORTISONE [Suspect]
     Active Substance: HYDROCORTISONE
     Indication: Colitis ulcerative
     Dosage: 8 DOSAGE FORM,Q8WK
     Route: 048
     Dates: start: 2018
  127. HYDROCORTISONE [Suspect]
     Active Substance: HYDROCORTISONE
     Indication: Colitis ulcerative
     Dosage: 8 DOSAGE FORM, QD
     Route: 048
     Dates: start: 201807
  128. HYDROCORTISONE [Suspect]
     Active Substance: HYDROCORTISONE
     Indication: Colitis ulcerative
     Dosage: UNK, Q8WK
     Route: 048
  129. HYDROCORTISONE [Suspect]
     Active Substance: HYDROCORTISONE
     Indication: Colitis ulcerative
     Dosage: 8 DOSAGE FORM,Q8WK
     Route: 048
     Dates: start: 2017

REACTIONS (18)
  - Frequent bowel movements [Unknown]
  - Steroid dependence [Unknown]
  - Deep vein thrombosis [Unknown]
  - Impaired work ability [Unknown]
  - Medication error [Unknown]
  - Haematochezia [Unknown]
  - Inappropriate schedule of product administration [Not Recovered/Not Resolved]
  - Weight decreased [Not Recovered/Not Resolved]
  - Loss of personal independence in daily activities [Unknown]
  - Drug ineffective [Unknown]
  - Rectal haemorrhage [Unknown]
  - Impaired quality of life [Unknown]
  - Bronchiectasis [Unknown]
  - Colitis ulcerative [Unknown]
  - Loss of personal independence in daily activities [Unknown]
  - Product use in unapproved indication [Unknown]
  - Stress [Not Recovered/Not Resolved]
  - Intentional product use issue [Not Recovered/Not Resolved]

NARRATIVE: CASE EVENT DATE: 20080101
